FAERS Safety Report 9160316 (Version 2)
Quarter: 2013Q2

REPORT INFORMATION
  Report Type: Spontaneous
  Country: FR (occurrence: None)
  Receive Date: 20130220
  Receipt Date: 20130415
  Transmission Date: 20140414
  Serious: Yes (Other)
  Sender: FDA-Public Use
  Company Number: FR-010900

PATIENT
  Age: 86 Year
  Sex: Male

DRUGS (5)
  1. FIRMAGON [Suspect]
     Indication: PROSTATE CANCER
     Route: 058
     Dates: start: 20130208, end: 20130208
  2. PREVISCAN/00789001 [Concomitant]
  3. PERMIXON [Concomitant]
  4. HEMIGOXINE [Concomitant]
  5. CASODEX [Concomitant]

REACTIONS (7)
  - Injection site pain [None]
  - Injection site nodule [None]
  - Syncope [None]
  - Vomiting [None]
  - Hypotension [None]
  - Pallor [None]
  - Abdominal pain [None]
